FAERS Safety Report 20843012 (Version 1)
Quarter: 2022Q2

REPORT INFORMATION
  Report Type: Spontaneous
  Country: US (occurrence: None)
  Receive Date: 20220517
  Receipt Date: 20220517
  Transmission Date: 20220721
  Serious: Yes (Hospitalization)
  Sender: FDA-Public Use
  Company Number: None

PATIENT
  Sex: Female

DRUGS (28)
  1. ORENCIA [Suspect]
     Active Substance: ABATACEPT
  2. ALPRAZOLAM [Concomitant]
     Active Substance: ALPRAZOLAM
  3. ATORVASTATIN [Concomitant]
     Active Substance: ATORVASTATIN
  4. ATORVASTATIN [Concomitant]
     Active Substance: ATORVASTATIN
  5. AZITHROMYCIN [Concomitant]
     Active Substance: AZITHROMYCIN
  6. BUSPIRONE TAB [Concomitant]
  7. CARVEDILOL [Concomitant]
     Active Substance: CARVEDILOL
  8. CLOPIDOGREL TAB [Concomitant]
  9. EZETIMIBE TAB [Concomitant]
  10. FARXIGA TAB [Concomitant]
  11. FLUTICASONE SPR [Concomitant]
  12. FOLIC ACID TAB [Concomitant]
  13. ISOSORB MONO TAB [Concomitant]
  14. JANUMET TAB [Concomitant]
  15. LATANOPROST SOL [Concomitant]
  16. LEVOTHYROXIN TAB [Concomitant]
  17. LOSARTAN POT TAB [Concomitant]
  18. MIRTAZAPINE TAB [Concomitant]
  19. NITROGLYCERN SUB [Concomitant]
  20. NOVOLOG INJ [Concomitant]
  21. ORENCIA CLCK INJ [Concomitant]
  22. OTREXUP [Concomitant]
     Active Substance: METHOTREXATE
  23. PANTOPRAZOLE TAB [Concomitant]
  24. PAROXETINE TAB [Concomitant]
  25. ROPINIROLE TAB [Concomitant]
  26. TRIAMCINOLONE ACETONIDE [Concomitant]
     Active Substance: TRIAMCINOLONE ACETONIDE
  27. VALACYCLOVIR TAB [Concomitant]
  28. VITAMIN D CAP [Concomitant]

REACTIONS (4)
  - Pain in extremity [None]
  - Erythema [None]
  - Localised infection [None]
  - Condition aggravated [None]
